FAERS Safety Report 22151326 (Version 1)
Quarter: 2023Q1

REPORT INFORMATION
  Report Type: Spontaneous
  Country: US (occurrence: US)
  Receive Date: 20230329
  Receipt Date: 20230329
  Transmission Date: 20230417
  Serious: Yes (Hospitalization, Other)
  Sender: FDA-Public Use
  Company Number: US-AMGEN-USASP2023050776

PATIENT

DRUGS (1)
  1. INFLIXIMAB [Suspect]
     Active Substance: INFLIXIMAB
     Indication: Crohn^s disease
     Dosage: UNK
     Route: 065

REACTIONS (7)
  - Intestinal fistula [Unknown]
  - Blood albumin decreased [Unknown]
  - Cellulitis [Unknown]
  - Abdominal abscess [Unknown]
  - Sepsis [Unknown]
  - Psoas abscess [Unknown]
  - Pelvic abscess [Unknown]
